FAERS Safety Report 16633480 (Version 4)
Quarter: 2020Q1

REPORT INFORMATION
  Report Type: Spontaneous
  Country: US (occurrence: US)
  Receive Date: 20190725
  Receipt Date: 20200326
  Transmission Date: 20200409
  Serious: Yes (Hospitalization)
  Sender: FDA-Public Use
  Company Number: US-VERTEX PHARMACEUTICALS-2019-006756

PATIENT
  Age: 2 Year
  Sex: Male
  Weight: 13 kg

DRUGS (25)
  1. VANCOMYCIN [Concomitant]
     Active Substance: VANCOMYCIN
     Indication: STAPHYLOCOCCAL INFECTION
     Dosage: 280 MG, QID
     Route: 042
  2. NEXIUM I.V. [Concomitant]
     Active Substance: ESOMEPRAZOLE SODIUM
     Dosage: UNK, QD
     Route: 048
  3. IBUPROFEN. [Concomitant]
     Active Substance: IBUPROFEN
     Indication: PAIN
     Dosage: 7.5 MILLILITER, PRN
     Route: 048
  4. TOBRAMYCIN. [Concomitant]
     Active Substance: TOBRAMYCIN
     Indication: BACTERIAL DISEASE CARRIER
     Dosage: UNK
     Route: 042
  5. LINEZOLID. [Concomitant]
     Active Substance: LINEZOLID
  6. MIRALAX [Concomitant]
     Active Substance: POLYETHYLENE GLYCOL 3350
  7. PERIACTIN [Concomitant]
     Active Substance: CYPROHEPTADINE HYDROCHLORIDE
     Indication: INFECTIVE PULMONARY EXACERBATION OF CYSTIC FIBROSIS
  8. PROAIR [FLUTICASONE PROPIONATE] [Concomitant]
     Active Substance: FLUTICASONE PROPIONATE
     Dosage: UNK
  9. IBUPROFEN. [Concomitant]
     Active Substance: IBUPROFEN
     Indication: PYREXIA
  10. NEXIUM [Concomitant]
     Active Substance: ESOMEPRAZOLE MAGNESIUM
     Indication: STAPHYLOCOCCAL INFECTION
  11. PERTZYE [Concomitant]
     Active Substance: PANCRELIPASE AMYLASE\PANCRELIPASE LIPASE\PANCRELIPASE PROTEASE
     Dosage: UNK
  12. CULTURELLE [Concomitant]
     Active Substance: LACTOBACILLUS RHAMNOSUS
     Dosage: UNK
  13. CYPROHEPTADINE. [Concomitant]
     Active Substance: CYPROHEPTADINE
     Dosage: UNK, BID
     Route: 048
  14. URSODIOL. [Concomitant]
     Active Substance: URSODIOL
     Dosage: UNK
  15. PULMOSAL [Concomitant]
     Active Substance: SODIUM CHLORIDE
     Dosage: UNK, BID
     Route: 055
  16. ZENPEP [Concomitant]
     Active Substance: PANCRELIPASE AMYLASE\PANCRELIPASE LIPASE\PANCRELIPASE PROTEASE
     Dosage: UNK UNK, TID
     Route: 048
  17. TOBRAMYCIN. [Concomitant]
     Active Substance: TOBRAMYCIN
     Indication: INFECTIVE PULMONARY EXACERBATION OF CYSTIC FIBROSIS
     Route: 055
  18. KITABIS PAK [Concomitant]
     Active Substance: TOBRAMYCIN
     Dosage: 300 MG
  19. LACTULOSE. [Concomitant]
     Active Substance: LACTULOSE
     Dosage: UNK, BID
     Route: 048
  20. PERIACTIN [Concomitant]
     Active Substance: CYPROHEPTADINE HYDROCHLORIDE
     Indication: STAPHYLOCOCCAL INFECTION
  21. ORKAMBI [Suspect]
     Active Substance: IVACAFTOR\LUMACAFTOR
     Indication: CYSTIC FIBROSIS
     Dosage: 100/125MG GRANULES, BID
     Route: 048
     Dates: start: 20190227, end: 20191115
  22. ORKAMBI [Suspect]
     Active Substance: IVACAFTOR\LUMACAFTOR
     Dosage: 100/125MG GRANULES, BID
     Route: 048
     Dates: start: 20191213, end: 20191220
  23. NEXIUM [Concomitant]
     Active Substance: ESOMEPRAZOLE MAGNESIUM
     Indication: INFECTIVE PULMONARY EXACERBATION OF CYSTIC FIBROSIS
     Dosage: UNK
  24. POLYCAL [Concomitant]
     Dosage: UNK
  25. SODIUM CHLORIDE. [Concomitant]
     Active Substance: SODIUM CHLORIDE
     Dosage: UNK

REACTIONS (5)
  - Otitis media [Recovered/Resolved]
  - Infective pulmonary exacerbation of cystic fibrosis [Recovered/Resolved]
  - Hepatic enzyme increased [Recovered/Resolved]
  - Staphylococcal infection [Recovered/Resolved]
  - Red man syndrome [Recovered/Resolved]

NARRATIVE: CASE EVENT DATE: 2019
